FAERS Safety Report 16531859 (Version 1)
Quarter: 2019Q3

REPORT INFORMATION
  Report Type: Report from Study
  Country: IT (occurrence: IT)
  Receive Date: 20190704
  Receipt Date: 20190704
  Transmission Date: 20191004
  Serious: Yes (Hospitalization, Other)
  Sender: FDA-Public Use
  Company Number: IT-ACCORD-135057

PATIENT
  Age: 8 Year
  Sex: Male
  Weight: 51 kg

DRUGS (29)
  1. MABTHERA [Suspect]
     Active Substance: RITUXIMAB
     Indication: BURKITT^S LYMPHOMA
     Dosage: 525 MG FROM 01-OCT-2018 TO 23-OCT-2018
     Route: 042
     Dates: start: 20181001, end: 20181001
  2. LASIX [Concomitant]
     Active Substance: FUROSEMIDE
     Dosage: 25 MG FROM 24-OCT-2018 TO 25-OCT-2018
     Route: 042
     Dates: start: 20180927, end: 20181001
  3. ANTRA [Concomitant]
     Active Substance: OMEPRAZOLE
     Route: 048
  4. PARACETAMOL [Concomitant]
     Active Substance: ACETAMINOPHEN
     Indication: PREMEDICATION
     Route: 048
     Dates: start: 20181023, end: 20181023
  5. ZOVIRAX [Concomitant]
     Active Substance: ACYCLOVIR
     Dosage: DOSE: 1500 MG
     Route: 042
     Dates: start: 20181012, end: 20181016
  6. METHOTREXATE. [Suspect]
     Active Substance: METHOTREXATE
     Indication: BURKITT^S LYMPHOMA
     Dosage: 12 MG 25-SEP-2018 TO 02-OCT-2018 INTRATHECAL
     Route: 042
     Dates: start: 20181002, end: 20181002
  7. OMEPRAZOLE. [Concomitant]
     Active Substance: OMEPRAZOLE
     Route: 042
     Dates: start: 20180927, end: 20181008
  8. LEDERFOLIN [Concomitant]
     Active Substance: LEUCOVORIN CALCIUM
     Route: 042
     Dates: start: 20181003, end: 20181004
  9. TRIMETON [Concomitant]
     Active Substance: CHLORPHENIRAMINE MALEATE
     Indication: PREMEDICATION
     Route: 042
     Dates: start: 20181023, end: 20181023
  10. CYTARABINE/CYTARABINE HYDROCHLORIDE/CYTARABINE OCFOSFATE [Suspect]
     Active Substance: CYTARABINE
     Indication: BURKITT^S LYMPHOMA
     Dosage: 222 MG FROM 05-OCT-2018 INTRAVENOUS
     Route: 037
     Dates: start: 20180925, end: 20181002
  11. CYCLOPHOSPHAMIDE/CYCLOPHOSPHAMIDE MONOHYDRATE [Suspect]
     Active Substance: CYCLOPHOSPHAMIDE
     Indication: BURKITT^S LYMPHOMA
     Dosage: 280 MG FROM 24-OCT-2018 TO 28-OCT-2018
     Route: 042
     Dates: start: 20180927, end: 20180928
  12. IFOSFAMIDE. [Suspect]
     Active Substance: IFOSFAMIDE
     Indication: BURKITT^S LYMPHOMA
     Route: 042
     Dates: start: 20181002, end: 20181006
  13. UROMITEXAN [Suspect]
     Active Substance: MESNA
     Indication: BURKITT^S LYMPHOMA
     Dosage: 300 MG 24-OCT-2018 TO 28-OCT-2018
     Route: 042
     Dates: start: 20180927, end: 20180928
  14. FLEBOCORTID RICHTER [Concomitant]
     Indication: PREMEDICATION
     Route: 042
     Dates: start: 20181023, end: 20181023
  15. ZOFRAN [Concomitant]
     Active Substance: ONDANSETRON HYDROCHLORIDE
     Dosage: 10 MG FROM 24-OCT-2018 TO 28-OCT-2018
     Route: 042
     Dates: start: 20180927, end: 20181006
  16. MYCOSTATIN [Concomitant]
     Active Substance: NYSTATIN
     Dosage: 465 ML
     Route: 048
     Dates: start: 20180925
  17. DECADRON [Concomitant]
     Active Substance: DEXAMETHASONE
     Dosage: 6.75 MG  FROM 29-OCT-2018 TO 31-OCT-2018
     Route: 048
     Dates: start: 20180927, end: 20181012
  18. MYELOSTIM [Concomitant]
     Active Substance: LENOGRASTIM
     Indication: APLASIA
     Dosage: ALSO FROM 26-NOV-2018 TO 29-NOV-2018
     Route: 042
     Dates: start: 20181012, end: 20181015
  19. CIPROXIN [Concomitant]
     Active Substance: CIPROFLOXACIN
     Dosage: ALSO RECEIVED 1 G
     Dates: start: 20181107
  20. VINCRISTINE [Suspect]
     Active Substance: VINCRISTINE
     Indication: BURKITT^S LYMPHOMA
     Dosage: 2 MG FRO 02-OCT-2018 TO 10-DEC-2018
     Route: 042
     Dates: start: 20181002, end: 20181002
  21. ZYLORIC [Concomitant]
     Active Substance: ALLOPURINOL
     Route: 048
     Dates: start: 20180927, end: 20181001
  22. BACTRIM [Concomitant]
     Active Substance: SULFAMETHOXAZOLE\TRIMETHOPRIM
     Dosage: 2 DOSAGE FORM
     Route: 048
     Dates: start: 20180925
  23. DIFLUCAN [Concomitant]
     Active Substance: FLUCONAZOLE
     Route: 042
     Dates: start: 20181012, end: 20181016
  24. ACICLIN [Concomitant]
     Active Substance: ACYCLOVIR
     Route: 048
     Dates: start: 20181105
  25. ETOPOSIDE. [Suspect]
     Active Substance: ETOPOSIDE
     Indication: BURKITT^S LYMPHOMA
     Route: 042
     Dates: start: 20181119, end: 20181120
  26. PRIVIGEN [Concomitant]
     Active Substance: HUMAN IMMUNOGLOBULIN G
     Route: 042
     Dates: start: 20181012
  27. DAUNOBLASTINA [Suspect]
     Active Substance: DAUNORUBICIN
     Indication: BURKITT^S LYMPHOMA
     Route: 042
     Dates: start: 20181027, end: 20181214
  28. URBASON [Concomitant]
     Active Substance: METHYLPREDNISOLONE
     Dosage: 10 MG FROM 25-SEP-2018 TO 10-DEC-2018
     Route: 037
     Dates: start: 20180925, end: 20181002
  29. DEURSIL [Concomitant]
     Active Substance: URSODIOL
     Indication: CHOLELITHIASIS
     Dosage: ALSO RECEIVED 900 MG
     Route: 048
     Dates: start: 20181012, end: 20181017

REACTIONS (10)
  - Spinal pain [Recovered/Resolved]
  - Vertigo [Recovered/Resolved]
  - Chest pain [Recovered/Resolved]
  - Neutropenia [Recovered/Resolved]
  - Leukopenia [Recovered/Resolved]
  - Nausea [Recovered/Resolved]
  - Vomiting [Recovered/Resolved]
  - Aplasia [Recovered/Resolved]
  - Pain in extremity [Recovered/Resolved]
  - Abdominal pain [Recovered/Resolved]

NARRATIVE: CASE EVENT DATE: 20181004
